FAERS Safety Report 11501453 (Version 1)
Quarter: 2015Q3

REPORT INFORMATION
  Report Type: Spontaneous
  Country: US (occurrence: US)
  Receive Date: 20150914
  Receipt Date: 20150914
  Transmission Date: 20151125
  Serious: Yes (Other)
  Sender: FDA-Public Use
  Company Number: US-VALIDUS PHARMACEUTICALS LLC-US-2015VAL000564

PATIENT
  Age: 20 Year
  Sex: Female

DRUGS (4)
  1. METOPROLOL TARTRATE. [Suspect]
     Active Substance: METOPROLOL TARTRATE
     Indication: VENTRICULAR ARRHYTHMIA
     Dosage: UNK
  2. METOPROLOL TARTRATE. [Suspect]
     Active Substance: METOPROLOL TARTRATE
     Indication: CARDIOMYOPATHY
  3. METOPROLOL TARTRATE. [Suspect]
     Active Substance: METOPROLOL TARTRATE
     Indication: VENTRICULAR FIBRILLATION
  4. DILTIAZEM [Concomitant]
     Active Substance: DILTIAZEM
     Dosage: UNK

REACTIONS (1)
  - Ventricular fibrillation [Unknown]
